FAERS Safety Report 10231076 (Version 1)
Quarter: 2014Q2

REPORT INFORMATION
  Report Type: Report from Study
  Country: BR (occurrence: BR)
  Receive Date: 20140611
  Receipt Date: 20140611
  Transmission Date: 20141212
  Serious: Yes (Other)
  Sender: FDA-Public Use
  Company Number: BR-BRISTOL-MYERS SQUIBB COMPANY-20977237

PATIENT
  Age: 49 Year
  Sex: Female
  Weight: 81 kg

DRUGS (1)
  1. ERBITUX [Suspect]
     Indication: COLORECTAL CANCER
     Dosage: LAST DOSE ADMN ON 02 JUN 2014
     Route: 042

REACTIONS (5)
  - Surgery [Not Recovered/Not Resolved]
  - Dry skin [Not Recovered/Not Resolved]
  - Skin fissures [Not Recovered/Not Resolved]
  - Nail disorder [Not Recovered/Not Resolved]
  - Eyelid skin dryness [Not Recovered/Not Resolved]
